FAERS Safety Report 25834484 (Version 1)
Quarter: 2025Q3

REPORT INFORMATION
  Report Type: Spontaneous
  Country: EU (occurrence: EU)
  Receive Date: 20250923
  Receipt Date: 20250923
  Transmission Date: 20251021
  Serious: Yes (Other)
  Sender: ORGANON
  Company Number: None

PATIENT
  Age: 81 Year
  Sex: Male
  Weight: 61 kg

DRUGS (1)
  1. SINEMET [Suspect]
     Active Substance: CARBIDOPA\LEVODOPA
     Indication: Parkinson^s disease
     Dosage: 100 MG X 3/ DAY
     Route: 048
     Dates: start: 20250520, end: 20250630

REACTIONS (3)
  - Diarrhoea [Recovered/Resolved]
  - Rectal haemorrhage [Recovered/Resolved]
  - Colitis [Recovering/Resolving]

NARRATIVE: CASE EVENT DATE: 20250605
